FAERS Safety Report 21291189 (Version 1)
Quarter: 2022Q3

REPORT INFORMATION
  Report Type: Spontaneous
  Country: US (occurrence: US)
  Receive Date: 20220903
  Receipt Date: 20220903
  Transmission Date: 20221027
  Serious: No
  Sender: FDA-Public Use
  Company Number: US-drreddys-SPO/USA/22/0153586

PATIENT
  Age: 13 Year

DRUGS (1)
  1. ZENATANE [Suspect]
     Active Substance: ISOTRETINOIN
     Indication: Acne
     Dosage: RMA ISSUE DATE: 11/MAY/2022 10:19:56 AM, 11/MAY/2022 01:06:02 PM, 15/JULY/2022 01:48:39 PM

REACTIONS (1)
  - Treatment noncompliance [Unknown]
